FAERS Safety Report 9067386 (Version 2)
Quarter: 2013Q1

REPORT INFORMATION
  Report Type: Other
  Country: GB (occurrence: GB)
  Receive Date: 20130206
  Receipt Date: 20130227
  Transmission Date: 20140127
  Serious: Yes (Other)
  Sender: FDA-Public Use
  Company Number: GB-WATSON-2013-01547

PATIENT
  Age: 31 Year
  Sex: Male

DRUGS (8)
  1. LEVETIRACETAM (UNKNOWN) [Suspect]
     Indication: EPILEPSY
     Dosage: 1000 MG, UNKNOWN
     Route: 048
     Dates: start: 2009
  2. LEVETIRACETAM (UNKNOWN) [Suspect]
     Dosage: UNKNOWN
     Route: 065
  3. SODIUM VALPROATE (UNKNOWN) [Suspect]
     Indication: AFFECTIVE DISORDER
     Dosage: 800 MG, BID
     Route: 048
     Dates: start: 2009
  4. CLOZARIL [Suspect]
     Indication: SCHIZOPHRENIA
     Dosage: UNK, UNKNOWN
     Route: 048
     Dates: start: 20040428
  5. CLOZARIL [Suspect]
     Dosage: 400 MG, UNKNOWN
     Route: 048
     Dates: start: 2009, end: 20121123
  6. LANSOPRAZOLE [Concomitant]
     Indication: PEPTIC ULCER
     Dosage: 60 MG, UNKNOWN
     Route: 048
     Dates: start: 2010
  7. SIMVASTATIN [Concomitant]
     Indication: LIPIDS INCREASED
     Dosage: 20 MG, UNKNOWN
     Route: 048
     Dates: start: 2011
  8. FYBOGEL [Concomitant]
     Indication: CONSTIPATION
     Dosage: UNK
     Route: 048
     Dates: start: 2012

REACTIONS (6)
  - Anaemia [Unknown]
  - Haemoglobin decreased [Recovered/Resolved]
  - Epilepsy [Recovered/Resolved]
  - Hyperpyrexia [Unknown]
  - Neutropenia [Recovered/Resolved]
  - White blood cell count decreased [Recovered/Resolved]
